FAERS Safety Report 10273397 (Version 1)
Quarter: 2014Q2

REPORT INFORMATION
  Report Type: Spontaneous
  Country: US (occurrence: None)
  Receive Date: 20140630
  Receipt Date: 20140630
  Transmission Date: 20141212
  Serious: Yes (Other)
  Sender: FDA-Public Use
  Company Number: 1397791

PATIENT
  Age: 44 Year
  Sex: Male

DRUGS (2)
  1. BONINE [Suspect]
  2. MULTIVITAMIN [Concomitant]

REACTIONS (6)
  - Foetal exposure timing unspecified [None]
  - Wolff-Parkinson-White syndrome [None]
  - Arrhythmia [None]
  - Cerebrovascular accident [None]
  - Cardiac ablation [None]
  - Post procedural complication [None]
